FAERS Safety Report 7921858-5 (Version None)
Quarter: 2011Q4

REPORT INFORMATION
  Report Type: 
  Country: None (occurrence: None)
  Receive Date: 20111117
  Receipt Date: 20111114
  Transmission Date: 20120403
  Serious: Yes (Hospitalization)
  Sender: FDA-Public Use
  Company Number: US-B.I. PHARMACEUTICALS,INC./RIDGEFIELD-2011-BP-26224BP

PATIENT
  Sex: Female

DRUGS (14)
  1. LIPITOR [Concomitant]
     Indication: BLOOD CHOLESTEROL INCREASED
     Route: 048
  2. SPIRONOLACTONE [Concomitant]
     Indication: HYPERTENSION
     Route: 048
  3. VITAMIN E [Concomitant]
     Indication: SUPPLEMENTATION THERAPY
     Route: 048
  4. DEXILANT [Concomitant]
     Indication: GASTROOESOPHAGEAL REFLUX DISEASE
     Route: 048
  5. PRADAXA [Suspect]
     Indication: ATRIAL FIBRILLATION
     Dosage: 300 MG
     Route: 048
     Dates: start: 20101101
  6. LASIX [Concomitant]
     Indication: HYPERTENSION
     Route: 048
  7. RAMIPRIL [Concomitant]
     Indication: HYPERTENSION
  8. FOLIC ACID [Concomitant]
     Indication: PROPHYLAXIS
     Route: 048
  9. PREDNISONE TAB [Concomitant]
     Indication: OSTEOARTHRITIS
     Dosage: 5 MG
     Route: 048
  10. PRADAXA [Suspect]
     Dosage: 150 MG
     Route: 048
  11. VERAPAMIL [Concomitant]
     Indication: HYPERTENSION
     Route: 048
  12. CENTRUM SILVER [Concomitant]
     Indication: SUPPLEMENTATION THERAPY
     Route: 048
  13. FERROUS SULFATE TAB [Concomitant]
     Indication: ANAEMIA
     Route: 048
  14. POTASSIUM [Concomitant]
     Indication: SUPPLEMENTATION THERAPY
     Route: 048

REACTIONS (3)
  - APHASIA [None]
  - FATIGUE [None]
  - TRANSIENT ISCHAEMIC ATTACK [None]
